FAERS Safety Report 18130330 (Version 1)
Quarter: 2020Q3

REPORT INFORMATION
  Report Type: Spontaneous
  Country: FR (occurrence: FR)
  Receive Date: 20200810
  Receipt Date: 20200810
  Transmission Date: 20201103
  Serious: Yes (Death, Life-Threatening, Other)
  Sender: FDA-Public Use
  Company Number: FR-AMGEN-FRASP2020127768

PATIENT

DRUGS (1)
  1. BLINATUMOMAB [Suspect]
     Active Substance: BLINATUMOMAB
     Indication: B PRECURSOR TYPE ACUTE LEUKAEMIA
     Dosage: UNK
     Route: 065

REACTIONS (7)
  - Infection [Fatal]
  - Multiple organ dysfunction syndrome [Fatal]
  - Acute lymphocytic leukaemia [Fatal]
  - Cytokine release syndrome [Fatal]
  - Acute lymphocytic leukaemia refractory [Fatal]
  - Neurological symptom [Unknown]
  - Leukaemic infiltration extramedullary [Unknown]
